FAERS Safety Report 6215870-4 (Version None)
Quarter: 2009Q2

REPORT INFORMATION
  Report Type: 
  Country: None (occurrence: None)
  Receive Date: 20090605
  Receipt Date: 20090525
  Transmission Date: 20091009
  Serious: Yes (Hospitalization)
  Sender: FDA-Public Use
  Company Number: IT-ROCHE-634435

PATIENT
  Sex: Male
  Weight: 75 kg

DRUGS (10)
  1. CAPECITABINE [Suspect]
     Dosage: DOSING FREQ: DAY 1-DAY 14, DOSAGE FORM: VIAL; TEMPORARILY INTERRUPTED
     Route: 048
     Dates: start: 20090406
  2. BEVACIZUMAB [Suspect]
     Dosage: DOSING FREQ: 3 WEEKS, DOSAGE FORM: VIAL; TEMPORARILY INTERRUPTED
     Route: 042
     Dates: start: 20090406
  3. OXALIPLATIN [Suspect]
     Dosage: DOSING FREQ: 3 WEEKS, DOSAGE FORM: VIAL; TEMPORARILY INTERRUPTED
     Route: 042
     Dates: start: 20090406
  4. TRIATEC [Concomitant]
     Dates: start: 19990101
  5. LASIX [Concomitant]
     Dates: start: 19990101
  6. FERLIXIT [Concomitant]
     Dates: start: 20090420
  7. LOPEMID [Concomitant]
     Dates: start: 20090430
  8. CO-EFFERALGAN [Concomitant]
     Dosage: TDD: 500+30 MG
     Dates: start: 20090518
  9. PLASIL [Concomitant]
     Dates: start: 20090522, end: 20090522
  10. LANSOX [Concomitant]
     Dates: start: 19990101

REACTIONS (1)
  - HEMIPARESIS [None]
